FAERS Safety Report 17727083 (Version 5)
Quarter: 2020Q2

REPORT INFORMATION
  Report Type: Report from Study
  Country: GB (occurrence: GB)
  Receive Date: 20200430
  Receipt Date: 20200609
  Transmission Date: 20200714
  Serious: Yes (Hospitalization)
  Sender: FDA-Public Use
  Company Number: GB-ROCHE-2590857

PATIENT
  Age: 52 Year
  Sex: Male
  Weight: 107.6 kg

DRUGS (6)
  1. E45 [Concomitant]
     Active Substance: LANOLIN\LIGHT MINERAL OIL\PARAFFIN
     Indication: DRY SKIN
     Route: 061
     Dates: start: 20191023
  2. PARACETAMOL [Concomitant]
     Active Substance: ACETAMINOPHEN
     Indication: ARTHRALGIA
     Route: 048
     Dates: start: 20191105
  3. IBUPROFEN. [Concomitant]
     Active Substance: IBUPROFEN
     Indication: ARTHRALGIA
     Route: 048
     Dates: start: 20191105
  4. ATEZOLIZUMAB. [Suspect]
     Active Substance: ATEZOLIZUMAB
     Indication: TRANSITIONAL CELL CARCINOMA
     Dosage: DATE OF MOST RECENT DOSE PRIOR TO SAE: 18/MAR/2020 AT THE DOSE OF 840 MG
     Route: 042
     Dates: start: 20191009
  5. TOCILIZUMAB. [Suspect]
     Active Substance: TOCILIZUMAB
     Indication: TRANSITIONAL CELL CARCINOMA
     Dosage: DATE OF MOST RECENT DOSE PRIOR TO SAE: 04/MAR/2020 AT THE DOSE OF 800 MG.
     Route: 042
     Dates: start: 20191009
  6. PREDNISOLONE. [Concomitant]
     Active Substance: PREDNISOLONE
     Indication: BLOOD CREATININE INCREASED
     Route: 048
     Dates: start: 20191112

REACTIONS (1)
  - Acute kidney injury [Not Recovered/Not Resolved]

NARRATIVE: CASE EVENT DATE: 20200421
